FAERS Safety Report 24660426 (Version 1)
Quarter: 2024Q4

REPORT INFORMATION
  Report Type: Spontaneous
  Country: US (occurrence: None)
  Receive Date: 20241124
  Receipt Date: 20241124
  Transmission Date: 20250114
  Serious: Yes (Life-Threatening, Hospitalization, Other)
  Sender: Public
  Company Number: None

PATIENT
  Age: 55 Year
  Sex: Female

DRUGS (1)
  1. OZEMPIC [Suspect]
     Active Substance: SEMAGLUTIDE
     Dosage: FREQUENCY : WEEKLY;?
     Dates: start: 20230619, end: 20240907

REACTIONS (4)
  - Anaemia [None]
  - Splenomegaly [None]
  - Post procedural complication [None]
  - Respiratory failure [None]

NARRATIVE: CASE EVENT DATE: 20240227
